FAERS Safety Report 18706805 (Version 2)
Quarter: 2021Q1

REPORT INFORMATION
  Report Type: Report from Study
  Country: US (occurrence: US)
  Receive Date: 20210106
  Receipt Date: 20210205
  Transmission Date: 20210419
  Serious: Yes (Death, Hospitalization, Other)
  Sender: FDA-Public Use
  Company Number: US-JNJFOC-20201250421

PATIENT
  Age: 85 Year
  Sex: Female

DRUGS (1)
  1. MACITENTAN [Suspect]
     Active Substance: MACITENTAN
     Indication: PULMONARY ARTERIAL HYPERTENSION
     Route: 048
     Dates: start: 20180924

REACTIONS (3)
  - Renal failure [Fatal]
  - Sepsis [Fatal]
  - Leptospirosis [Fatal]

NARRATIVE: CASE EVENT DATE: 20201205
